FAERS Safety Report 8124632-2 (Version None)
Quarter: 2012Q1

REPORT INFORMATION
  Report Type: 
  Country: None (occurrence: None)
  Receive Date: 20120209
  Receipt Date: 20120209
  Transmission Date: 20120608
  Serious: Yes (Life-Threatening, Hospitalization)
  Sender: FDA-Public Use
  Company Number: None

PATIENT
  Age: 39 Year
  Sex: Female
  Weight: 108.86 kg

DRUGS (1)
  1. TOPROL-XL [Suspect]
     Indication: HYPERTENSION
     Dosage: 1 TAB
     Route: 048
     Dates: start: 20120201, end: 20120205

REACTIONS (4)
  - HYPOAESTHESIA [None]
  - BURNING SENSATION [None]
  - CHEST PAIN [None]
  - BLOOD PRESSURE DIASTOLIC INCREASED [None]
